FAERS Safety Report 8555002-0 (Version None)
Quarter: 2012Q3

REPORT INFORMATION
  Report Type: 
  Country: None (occurrence: None)
  Receive Date: 20120731
  Receipt Date: 20120726
  Transmission Date: 20120928
  Serious: Yes (Hospitalization)
  Sender: FDA-Public Use
  Company Number: US-ABBOTT-12P-163-0960650-00

PATIENT

DRUGS (2)
  1. HUMIRA [Suspect]
     Indication: PRODUCT USED FOR UNKNOWN INDICATION
     Dosage: 160 MG LOADING DOSE
     Dates: start: 20120601, end: 20120601
  2. HUMIRA [Suspect]
     Dosage: NEXT DOSE

REACTIONS (4)
  - UNEVALUABLE EVENT [None]
  - URINARY INCONTINENCE [None]
  - DYSURIA [None]
  - HOSPITALISATION [None]
